FAERS Safety Report 9097035 (Version 1)
Quarter: 2013Q1

REPORT INFORMATION
  Report Type: Spontaneous
  Country: FR (occurrence: None)
  Receive Date: 20130123
  Receipt Date: 20130123
  Transmission Date: 20140127
  Serious: Yes (Hospitalization)
  Sender: FDA-Public Use
  Company Number: DSM-2013-00020

PATIENT
  Age: 82 Year
  Sex: Female

DRUGS (7)
  1. OLMETEC (OLMESARTAN MEDOXOMIL) [Suspect]
     Indication: HYPERTENSION
     Route: 048
     Dates: end: 201109
  2. AMAREL (GLIMEPIRIDE) (2 MILLIGRAM, TABLET)(GLIMEPIRIDE) [Concomitant]
  3. TEMERIT (NEBIVOLOL) (5 MILLIGRAM, TABLET, (NEBIVOLOL) [Concomitant]
  4. VASTAREL (TRIMETAZIDINE HYDROCHLORIDE) (35 MILLIGRAM, PROLONGED-RELEASE TABLET) (TRIMETAZIDINE HYDROCHLORIDE) [Concomitant]
  5. RIVOTRIL (CLIONAZEPAM) (CLONAZEPAM) [Concomitant]
  6. KLIPAL (CODEINE PHOSPHATE, PARACETAMOL) (CODEINE PHOSPHATE, PARACETAMOL) [Concomitant]
  7. XELEVIA (SITAGLIPTIN) (SITAGLIPTIN) [Concomitant]

REACTIONS (4)
  - Diarrhoea [None]
  - Weight decreased [None]
  - Cachexia [None]
  - Treatment failure [None]
